FAERS Safety Report 11146142 (Version 1)
Quarter: 2015Q2

REPORT INFORMATION
  Report Type: Spontaneous
  Country: NZ (occurrence: NZ)
  Receive Date: 20150528
  Receipt Date: 20150528
  Transmission Date: 20150821
  Serious: Yes (Other)
  Sender: FDA-Public Use
  Company Number: NZ-ACTAVIS-2015-09620

PATIENT
  Age: 58 Year
  Sex: Female

DRUGS (1)
  1. OXALIPLATIN ACTAVIS [Suspect]
     Active Substance: OXALIPLATIN
     Indication: PRODUCT USED FOR UNKNOWN INDICATION
     Dosage: UNK
     Route: 065
     Dates: start: 20150114, end: 20150325

REACTIONS (3)
  - Syncope [Unknown]
  - Throat tightness [Unknown]
  - Cold sweat [Unknown]

NARRATIVE: CASE EVENT DATE: 20150325
